FAERS Safety Report 5531231-5 (Version None)
Quarter: 2007Q4

REPORT INFORMATION
  Report Type: 
  Country: None (occurrence: None)
  Receive Date: 20071130
  Receipt Date: 20071127
  Transmission Date: 20080405
  Serious: Yes (Hospitalization)
  Sender: FDA-Public Use
  Company Number: US-BRISTOL-MYERS SQUIBB COMPANY-13976576

PATIENT
  Age: 46 Year
  Sex: Male

DRUGS (13)
  1. BLINDED: SAXAGLIPTIN [Suspect]
     Indication: TYPE 2 DIABETES MELLITUS
     Dosage: INTERRUPTED ON 07-NOV-2007 AND 08-NOV-2007, RESUMED 09-NOV-2007 TO 13-NOV-2007.
     Route: 048
     Dates: start: 20070526, end: 20071106
  2. METFORMIN HCL [Suspect]
     Indication: TYPE 2 DIABETES MELLITUS
     Dosage: INTERRUPTED ON 07-NOV-2007 AND 08-NOV-2007, RESUMED 09-NOV-2007 TO 13-NOV-2007.
     Route: 048
     Dates: start: 20071024, end: 20071106
  3. BLINDED: PLACEBO [Suspect]
     Indication: TYPE 2 DIABETES MELLITUS
     Dosage: INTERRUPTED ON 07-NOV-2007 AND 08-NOV-2007, RESUMED 09-NOV-2007 TO 13-NOV-2007.
     Route: 048
     Dates: start: 20070526, end: 20071106
  4. ROSIGLITAZONE [Suspect]
     Indication: TYPE 2 DIABETES MELLITUS
     Dosage: INTERRUPTED ON 07-NOV-2007 AND 08-NOV-2007, RESUMED 09-NOV-2007 TO 13-NOV-2007.
     Route: 048
     Dates: start: 20070526, end: 20071106
  5. VYTORIN [Concomitant]
     Indication: BLOOD CHOLESTEROL
     Dosage: DOSE VALUE: 10/40
  6. SULAR [Concomitant]
     Indication: HYPERTENSION
  7. TYLENOL [Concomitant]
  8. OPTIVAR [Concomitant]
     Route: 047
  9. BENICAR HCT [Concomitant]
     Dosage: 1 DOSAGE FORM=12.5/40 MG
     Route: 048
  10. LOPID [Concomitant]
  11. FISH OIL [Concomitant]
  12. NEXIUM [Concomitant]
  13. PREVACID [Concomitant]

REACTIONS (2)
  - ACUTE MYOCARDIAL INFARCTION [None]
  - CORONARY ARTERY DISEASE [None]
